FAERS Safety Report 8215445 (Version 2)
Quarter: 2013Q2

REPORT INFORMATION
  Report Type: Report from Study
  Country: US (occurrence: US)
  Receive Date: 20111031
  Receipt Date: 20130605
  Transmission Date: 20140414
  Serious: Yes (Death, Other)
  Sender: FDA-Public Use
  Company Number: US-BRISTOL-MYERS SQUIBB COMPANY-16189078

PATIENT
  Age: 73 Year
  Sex: Female
  Weight: 95.5 kg

DRUGS (25)
  1. CARBOPLATIN [Suspect]
     Indication: NON-SMALL CELL LUNG CANCER
     Dosage: 1 DF= AUC= 5.5 ON DAY 1, 480MG
     Route: 042
     Dates: start: 20110921, end: 20110921
  2. GEMCITABINE [Suspect]
     Indication: NON-SMALL CELL LUNG CANCER
     Dosage: ON DAYS 1,8, TOTAL= 2140MG
     Route: 042
     Dates: start: 20110921, end: 20110921
  3. BLINDED: CELECOXIB [Suspect]
     Indication: NON-SMALL CELL LUNG CANCER
     Dosage: DAYS 1-21 FOR CYCLE 1-6, TOTAL= 3600MG
     Route: 048
     Dates: start: 20110921, end: 20110925
  4. BLINDED: PLACEBO [Suspect]
     Indication: NON-SMALL CELL LUNG CANCER
     Route: 048
     Dates: start: 20110921, end: 20110925
  5. ALOXI [Concomitant]
  6. AMITRIPTYLINE [Concomitant]
  7. AMOXICILLINE [Concomitant]
  8. ACETYLSALICYLIC ACID [Concomitant]
  9. BISOPROLOL [Concomitant]
  10. CALCIUM + VITAMIN D [Concomitant]
  11. FAMOTIDINE [Concomitant]
  12. HYDROCODONE [Concomitant]
  13. CODEINE + GUAIFENESIN [Concomitant]
  14. COMPAZINE [Concomitant]
  15. LEVOTHYROXINE [Concomitant]
  16. LORATADINE [Concomitant]
  17. LOVASTATIN [Concomitant]
  18. MAGNESIUM GLUCONATE [Concomitant]
  19. MULTIVITAMINS [Concomitant]
  20. NITROGLYCERIN [Concomitant]
  21. OXYBUTYNIN [Concomitant]
  22. TRANDOLAPRIL [Concomitant]
  23. DEXAMETHASONE [Concomitant]
  24. EPINEPHRINE [Concomitant]
  25. SPIRIVA [Concomitant]

REACTIONS (4)
  - Death [Fatal]
  - Pulmonary embolism [Unknown]
  - Myocardial infarction [Unknown]
  - Unresponsive to stimuli [None]
